FAERS Safety Report 23302656 (Version 1)
Quarter: 2023Q4

REPORT INFORMATION
  Report Type: Spontaneous
  Country: US (occurrence: None)
  Receive Date: 20231215
  Receipt Date: 20231215
  Transmission Date: 20240110
  Serious: Yes (Death, Hospitalization)
  Sender: FDA-Public Use
  Company Number: 2023A285154

PATIENT
  Age: 66 Year
  Sex: Female

DRUGS (4)
  1. QUETIAPINE [Suspect]
     Active Substance: QUETIAPINE
     Route: 048
  2. DIAZEPAM [Suspect]
     Active Substance: DIAZEPAM
  3. LAMOTRIGINE [Suspect]
     Active Substance: LAMOTRIGINE
  4. PALIPERIDONE [Suspect]
     Active Substance: PALIPERIDONE

REACTIONS (1)
  - Toxicity to various agents [Fatal]
